FAERS Safety Report 8219474-3 (Version None)
Quarter: 2012Q1

REPORT INFORMATION
  Report Type: 
  Country: None (occurrence: None)
  Receive Date: 20120319
  Receipt Date: 20120313
  Transmission Date: 20120608
  Serious: No
  Sender: FDA-Public Use
  Company Number: US-PFIZER INC-2012062564

PATIENT
  Sex: Female
  Weight: 77.1 kg

DRUGS (8)
  1. PREMARIN [Suspect]
     Indication: HOT FLUSH
  2. PREMARIN [Suspect]
     Indication: MENOPAUSE
  3. METHOCARBAMOL [Concomitant]
     Dosage: UNK
  4. PREMARIN [Suspect]
     Indication: VULVOVAGINAL DRYNESS
     Dosage: 0.625 MG, 1X/DAY
     Route: 048
  5. XANAX [Concomitant]
     Indication: SLEEP DISORDER
     Dosage: UNK
  6. EFFEXOR XR [Concomitant]
     Dosage: UNK, 1X/DAY
  7. LISINOPRIL [Concomitant]
     Indication: HYPERTENSION
     Dosage: UNK
  8. LORTAB [Concomitant]
     Indication: PAIN
     Dosage: UNK

REACTIONS (3)
  - HOT FLUSH [None]
  - NIGHT SWEATS [None]
  - DRUG INEFFECTIVE [None]
